FAERS Safety Report 7830265-5 (Version None)
Quarter: 2011Q4

REPORT INFORMATION
  Report Type: 
  Country: None (occurrence: None)
  Receive Date: 20111021
  Receipt Date: 20111014
  Transmission Date: 20120403
  Serious: Yes (Other)
  Sender: FDA-Public Use
  Company Number: JP-PFIZER INC-2011244538

PATIENT
  Age: 46 Year
  Sex: Male

DRUGS (18)
  1. SULPIRIDE [Concomitant]
     Indication: SCHIZOPHRENIA
  2. TASMOLIN [Concomitant]
  3. BLONANSERIN [Suspect]
     Dosage: 24 MG, UNK
     Route: 048
  4. FLUVOXAMINE MALEATE [Concomitant]
     Indication: SCHIZOPHRENIA
  5. CLOTIAZEPAM [Suspect]
     Indication: SCHIZOPHRENIA
  6. TOPIRAMATE [Concomitant]
     Dosage: 200 MG, UNK
  7. LITHIUM CARBONATE [Suspect]
     Indication: SCHIZOPHRENIA
  8. ALPRAZOLAM [Concomitant]
  9. DIAZEPAM [Concomitant]
     Indication: SCHIZOPHRENIA
  10. BROMAZEPAM [Concomitant]
     Indication: SCHIZOPHRENIA
  11. DEPAS [Concomitant]
  12. PROMETHAZINE HCL [Concomitant]
  13. CHLORPROMAZINE HCL [Concomitant]
  14. TOPIRAMATE [Concomitant]
     Indication: SCHIZOPHRENIA
     Dosage: 100 MG, UNK
  15. PHENOBARBITAL [Concomitant]
     Indication: SCHIZOPHRENIA
  16. CHLORPROMAZINE HCL [Concomitant]
     Indication: SCHIZOPHRENIA
  17. BLONANSERIN [Suspect]
     Indication: SCHIZOPHRENIA
     Dosage: 16 MG, UNK
     Route: 048
  18. FLUNITRAZEPAM [Concomitant]
     Indication: SCHIZOPHRENIA
     Dosage: 4 MG, UNK

REACTIONS (1)
  - NEUROLEPTIC MALIGNANT SYNDROME [None]
